FAERS Safety Report 24984300 (Version 1)
Quarter: 2025Q1

REPORT INFORMATION
  Report Type: Report from Study
  Country: US (occurrence: US)
  Receive Date: 20250219
  Receipt Date: 20250219
  Transmission Date: 20250409
  Serious: Yes (Death, Hospitalization, Other)
  Sender: RANBAXY
  Company Number: US-SUN PHARMACEUTICAL INDUSTRIES LTD-2025R1-494835

PATIENT
  Age: 80 Year
  Sex: Male

DRUGS (10)
  1. PREDNISONE [Suspect]
     Active Substance: PREDNISONE
     Indication: Myocarditis
     Dosage: 85 MILLIGRAM, DAILY
     Route: 048
  2. PREDNISONE [Suspect]
     Active Substance: PREDNISONE
     Indication: Myositis
     Dosage: 35 MILLIGRAM, DAILY
     Route: 048
  3. PREDNISONE [Suspect]
     Active Substance: PREDNISONE
     Dosage: 5 MILLIGRAM, DAILY
     Route: 048
  4. CEFPODOXIME [Concomitant]
     Active Substance: CEFPODOXIME
     Indication: Prophylaxis
     Dosage: 400 MILLIGRAM, QD
     Route: 065
  5. ECULIZUMAB [Concomitant]
     Active Substance: ECULIZUMAB
     Indication: Prophylaxis
     Dosage: 900 MILLIGRAM, QD
     Route: 042
  6. ECULIZUMAB [Concomitant]
     Active Substance: ECULIZUMAB
     Dosage: 900 MILLIGRAM, WEEKLY
     Route: 042
  7. ECULIZUMAB [Concomitant]
     Active Substance: ECULIZUMAB
     Route: 042
  8. RAVULIZUMAB [Concomitant]
     Active Substance: RAVULIZUMAB
     Indication: Product used for unknown indication
     Route: 042
  9. RAVULIZUMAB [Concomitant]
     Active Substance: RAVULIZUMAB
     Route: 042
  10. RAVULIZUMAB [Concomitant]
     Active Substance: RAVULIZUMAB
     Route: 042

REACTIONS (3)
  - Disease progression [Fatal]
  - Septic shock [Fatal]
  - Urinary tract infection [Fatal]
